FAERS Safety Report 22311770 (Version 2)
Quarter: 2023Q2

REPORT INFORMATION
  Report Type: Spontaneous
  Country: US (occurrence: US)
  Receive Date: 20230512
  Receipt Date: 20230515
  Transmission Date: 20230721
  Serious: Yes (Other)
  Sender: FDA-Public Use
  Company Number: GB-STRIDES ARCOLAB LIMITED-2023SP006888

PATIENT
  Age: 50 Year
  Sex: Female

DRUGS (1)
  1. ACARBOSE [Suspect]
     Active Substance: ACARBOSE
     Indication: Hypoglycaemia
     Dosage: UNK
     Route: 065

REACTIONS (2)
  - Gastrointestinal disorder [Recovered/Resolved]
  - Drug ineffective [Unknown]
